FAERS Safety Report 15330351 (Version 3)
Quarter: 2019Q1

REPORT INFORMATION
  Report Type: Spontaneous
  Country: US (occurrence: US)
  Receive Date: 20180829
  Receipt Date: 20190328
  Transmission Date: 20190417
  Serious: No
  Sender: FDA-Public Use
  Company Number: US-SA-2018SA238183

PATIENT
  Age: 18 Year
  Sex: Female

DRUGS (8)
  1. LITHIUM CARBONATE. [Concomitant]
     Active Substance: LITHIUM CARBONATE
  2. DUPIXENT [Suspect]
     Active Substance: DUPILUMAB
     Indication: DERMATITIS ATOPIC
     Dosage: 300 MG, QOW
     Route: 058
     Dates: start: 201801
  3. AMOXICILLIN. [Concomitant]
     Active Substance: AMOXICILLIN
  4. TRILEPTAL [Concomitant]
     Active Substance: OXCARBAZEPINE
  5. CLONIDINE. [Concomitant]
     Active Substance: CLONIDINE
  6. NITROFURANTOIN. [Concomitant]
     Active Substance: NITROFURANTOIN
  7. VRAYLAR [Concomitant]
     Active Substance: CARIPRAZINE
  8. NICOTINE. [Concomitant]
     Active Substance: NICOTINE
     Route: 062

REACTIONS (3)
  - Product dose omission [Unknown]
  - Dry skin [Not Recovered/Not Resolved]
  - Dermatitis [Not Recovered/Not Resolved]

NARRATIVE: CASE EVENT DATE: 201807
